FAERS Safety Report 23429626 (Version 2)
Quarter: 2024Q1

REPORT INFORMATION
  Report Type: Spontaneous
  Country: US (occurrence: US)
  Receive Date: 20240122
  Receipt Date: 20240305
  Transmission Date: 20240409
  Serious: Yes (Other)
  Sender: FDA-Public Use
  Company Number: US-PFIZER INC-202400016451

PATIENT
  Age: 78 Year
  Sex: Male
  Weight: 83.9 kg

DRUGS (1)
  1. VYNDAMAX [Suspect]
     Active Substance: TAFAMIDIS
     Indication: Cardiac amyloidosis
     Dosage: 61 MG, DAILY

REACTIONS (4)
  - Cardiac failure congestive [Unknown]
  - Disease progression [Unknown]
  - Dyspnoea [Unknown]
  - Insomnia [Unknown]
